FAERS Safety Report 23663858 (Version 1)
Quarter: 2024Q1

REPORT INFORMATION
  Report Type: Spontaneous
  Country: US (occurrence: None)
  Receive Date: 20240322
  Receipt Date: 20240322
  Transmission Date: 20240410
  Serious: No
  Sender: FDA-Public Use
  Company Number: None

PATIENT
  Age: 11 Year
  Sex: Female
  Weight: 67.13 kg

DRUGS (1)
  1. ORENCIA [Suspect]
     Active Substance: ABATACEPT
     Indication: Morphoea
     Dosage: FREQUENCY : WEEKLY;?
     Route: 058
     Dates: start: 202207

REACTIONS (2)
  - Ear infection [None]
  - Therapy interrupted [None]
